FAERS Safety Report 5597264-8 (Version None)
Quarter: 2007Q4

REPORT INFORMATION
  Report Type: 
  Country: None (occurrence: None)
  Receive Date: 20071221
  Receipt Date: 20070920
  Transmission Date: 20080405
  Serious: No
  Sender: FDA-Public Use
  Company Number: SPV1-2007-04279

PATIENT
  Age: 4 Year

DRUGS (1)
  1. VYVANSE [Suspect]
     Dates: start: 20070920

REACTIONS (3)
  - AFFECT LABILITY [None]
  - ATTENTION DEFICIT/HYPERACTIVITY DISORDER [None]
  - OFF LABEL USE [None]
